FAERS Safety Report 8941296 (Version 1)
Quarter: 2012Q4

REPORT INFORMATION
  Report Type: 
  Country: ES (occurrence: ES)
  Receive Date: 20121203
  Receipt Date: 20121203
  Transmission Date: 20130627
  Serious: Yes (Hospitalization)
  Sender: FDA-Public Use
  Company Number: ES-ELI_LILLY_AND_COMPANY-ES201211007297

PATIENT
  Age: 73 Year
  Sex: Female
  Weight: 49 kg

DRUGS (2)
  1. FORSTEO [Suspect]
     Indication: OSTEOPOROSIS
     Dosage: 20 ug, qd
     Route: 058
     Dates: start: 20110726, end: 201210
  2. ATENOLOL [Concomitant]
     Indication: HYPOTHYROIDISM
     Dosage: 1 DF, qd
     Route: 048

REACTIONS (1)
  - Uterine cancer [Not Recovered/Not Resolved]
